FAERS Safety Report 5925095-5 (Version None)
Quarter: 2008Q4

REPORT INFORMATION
  Report Type: 
  Country: None (occurrence: None)
  Receive Date: 20081021
  Receipt Date: 20081008
  Transmission Date: 20090506
  Serious: Yes (Other)
  Sender: FDA-Public Use
  Company Number: US-JNJFOC-20081002510

PATIENT
  Age: 25 Year
  Sex: Female
  Weight: 113.4 kg

DRUGS (1)
  1. TYLENOL COLD MULTI-SYMPTOM DAYTIME CITRUS BURST [Suspect]
     Indication: DRUG USE FOR UNKNOWN INDICATION

REACTIONS (3)
  - BEDRIDDEN [None]
  - COLD SWEAT [None]
  - HALLUCINATION [None]
